FAERS Safety Report 11491306 (Version 1)
Quarter: 2015Q3

REPORT INFORMATION
  Report Type: Spontaneous
  Country: US (occurrence: US)
  Receive Date: 20150910
  Receipt Date: 20150910
  Transmission Date: 20151125
  Serious: No
  Sender: FDA-Public Use
  Company Number: US-JNJFOC-20150810922

PATIENT
  Age: 81 Year
  Sex: Female
  Weight: 74.84 kg

DRUGS (2)
  1. IMODIUM MULTI-SYMPTOM RELIEF [Suspect]
     Active Substance: DIMETHICONE\LOPERAMIDE HYDROCHLORIDE
     Route: 048
  2. IMODIUM MULTI-SYMPTOM RELIEF [Suspect]
     Active Substance: DIMETHICONE\LOPERAMIDE HYDROCHLORIDE
     Indication: DIARRHOEA
     Dosage: DOSAGE: 1 1/2 CAPLETS
     Route: 048
     Dates: start: 20150814, end: 20150814

REACTIONS (7)
  - Product quality issue [Unknown]
  - Choking [Unknown]
  - Wrong technique in product usage process [Unknown]
  - Drug ineffective [Unknown]
  - Dysgeusia [Unknown]
  - Product packaging issue [Unknown]
  - Product size issue [Unknown]
